FAERS Safety Report 8601516-4 (Version None)
Quarter: 2012Q3

REPORT INFORMATION
  Report Type: 
  Country: None (occurrence: None)
  Receive Date: 20120817
  Receipt Date: 20111027
  Transmission Date: 20120928
  Serious: Yes (Life-Threatening, Other)
  Sender: FDA-Public Use
  Company Number: US-BRISTOL-MYERS SQUIBB COMPANY-16202723

PATIENT
  Age: 61 Year
  Sex: Male

DRUGS (9)
  1. AMITRIPTYLINE HCL [Concomitant]
  2. CELEXA [Concomitant]
  3. SPRYCEL [Suspect]
     Indication: CHRONIC MYELOID LEUKAEMIA
     Dosage: INTRP ON9AUG11
     Dates: start: 20100401, end: 20110101
  4. HYDROCHLOROTHIAZIDE [Concomitant]
  5. NAPROSYN [Concomitant]
  6. FLOMAX [Concomitant]
  7. SIMVASTATIN [Concomitant]
  8. NEURONTIN [Concomitant]
  9. OMEPRAZOLE [Concomitant]

REACTIONS (1)
  - PLEURAL EFFUSION [None]
